FAERS Safety Report 7817110-9 (Version None)
Quarter: 2011Q4

REPORT INFORMATION
  Report Type: 
  Country: None (occurrence: None)
  Receive Date: 20111017
  Receipt Date: 20111010
  Transmission Date: 20120403
  Serious: Yes (Other)
  Sender: FDA-Public Use
  Company Number: PHEH2011US06397

PATIENT
  Sex: Female
  Weight: 60.771 kg

DRUGS (1)
  1. GILENYA [Suspect]
     Indication: MULTIPLE SCLEROSIS
     Dosage: 0.5 MG, QD
     Route: 048
     Dates: start: 20110727

REACTIONS (9)
  - OROPHARYNGEAL PAIN [None]
  - WEIGHT INCREASED [None]
  - HEADACHE [None]
  - BACK PAIN [None]
  - SUICIDAL IDEATION [None]
  - ARTHRITIS [None]
  - VISION BLURRED [None]
  - CONJUNCTIVITIS [None]
  - COUGH [None]
